FAERS Safety Report 19476794 (Version 1)
Quarter: 2021Q2

REPORT INFORMATION
  Report Type: Spontaneous
  Country: US (occurrence: US)
  Receive Date: 20210630
  Receipt Date: 20210630
  Transmission Date: 20210717
  Serious: No
  Sender: FDA-Public Use
  Company Number: US-GLAXOSMITHKLINE-US2021AMR137903

PATIENT
  Sex: Female

DRUGS (1)
  1. BENLYSTA [Suspect]
     Active Substance: BELIMUMAB
     Indication: SYSTEMIC LUPUS ERYTHEMATOSUS
     Dosage: 5 MG, WE
     Dates: start: 2020

REACTIONS (3)
  - Mouth swelling [Not Recovered/Not Resolved]
  - Stomatitis [Not Recovered/Not Resolved]
  - Dermatitis allergic [Unknown]
